FAERS Safety Report 14675850 (Version 1)
Quarter: 2018Q1

REPORT INFORMATION
  Report Type: Spontaneous
  Country: US (occurrence: US)
  Receive Date: 20180323
  Receipt Date: 20180323
  Transmission Date: 20180509
  Serious: Yes (Hospitalization, Other)
  Sender: FDA-Public Use
  Company Number: US-JNJFOC-20180323066

PATIENT
  Age: 70 Year
  Sex: Female
  Weight: 85.28 kg

DRUGS (10)
  1. XARELTO [Suspect]
     Active Substance: RIVAROXABAN
     Indication: PRODUCT USED FOR UNKNOWN INDICATION
     Route: 048
  2. XARELTO [Suspect]
     Active Substance: RIVAROXABAN
     Indication: PRODUCT USED FOR UNKNOWN INDICATION
     Route: 048
  3. NEXIUM [Concomitant]
     Active Substance: ESOMEPRAZOLE MAGNESIUM
     Route: 048
  4. METOPROLOL TARTRATE. [Concomitant]
     Active Substance: METOPROLOL TARTRATE
     Route: 048
  5. HYDROCHLOROTHIAZIDE. [Concomitant]
     Active Substance: HYDROCHLOROTHIAZIDE
     Route: 048
     Dates: start: 201504, end: 201504
  6. METFORMIN [Concomitant]
     Active Substance: METFORMIN HYDROCHLORIDE
     Route: 048
  7. LYRICA [Concomitant]
     Active Substance: PREGABALIN
     Route: 065
  8. FEMARA [Suspect]
     Active Substance: LETROZOLE
     Indication: PRODUCT USED FOR UNKNOWN INDICATION
     Route: 048
  9. XARELTO [Suspect]
     Active Substance: RIVAROXABAN
     Indication: PRODUCT USED FOR UNKNOWN INDICATION
     Dosage: PM
     Route: 048
     Dates: start: 20150420, end: 20160812
  10. VYTORIN [Concomitant]
     Active Substance: EZETIMIBE\SIMVASTATIN
     Dosage: 10-20 MG
     Route: 048

REACTIONS (8)
  - Neuropathy peripheral [Unknown]
  - Embolism [Unknown]
  - Peripheral venous disease [Unknown]
  - Deep vein thrombosis [Unknown]
  - Essential hypertension [Unknown]
  - Catheterisation cardiac [Unknown]
  - Electrocardiogram T wave abnormal [Unknown]
  - Arthritis [Unknown]

NARRATIVE: CASE EVENT DATE: 20150420
